FAERS Safety Report 7785653-2 (Version None)
Quarter: 2011Q3

REPORT INFORMATION
  Report Type: 
  Country: None (occurrence: None)
  Receive Date: 20110929
  Receipt Date: 20110929
  Transmission Date: 20111222
  Serious: No
  Sender: FDA-Public Use
  Company Number: None

PATIENT
  Age: 33 Year
  Sex: Male
  Weight: 84.368 kg

DRUGS (1)
  1. CELEXA [Suspect]
     Indication: DEPRESSION
     Dosage: 20MG
     Route: 048
     Dates: start: 20110902, end: 20110905

REACTIONS (4)
  - MYALGIA [None]
  - GAIT DISTURBANCE [None]
  - MUSCLE SPASMS [None]
  - MIGRAINE [None]
